FAERS Safety Report 16662520 (Version 1)
Quarter: 2019Q3

REPORT INFORMATION
  Report Type: Report from Study
  Country: US (occurrence: US)
  Receive Date: 20190802
  Receipt Date: 20190802
  Transmission Date: 20191004
  Serious: No
  Sender: FDA-Public Use
  Company Number: US-EXELIXIS-CABO-18017560

PATIENT
  Sex: Male
  Weight: 88.44 kg

DRUGS (1)
  1. CABOMETYX [Suspect]
     Active Substance: CABOZANTINIB S-MALATE
     Indication: RENAL CANCER
     Dosage: 60 MG, UNK

REACTIONS (4)
  - Dysgeusia [Unknown]
  - Blood pressure increased [Unknown]
  - Hypoaesthesia oral [Unknown]
  - Dysphonia [Unknown]

NARRATIVE: CASE EVENT DATE: 2018
